FAERS Safety Report 16466208 (Version 2)
Quarter: 2020Q1

REPORT INFORMATION
  Report Type: Spontaneous
  Country: US (occurrence: US)
  Receive Date: 20190621
  Receipt Date: 20200324
  Transmission Date: 20200409
  Serious: No
  Sender: FDA-Public Use
  Company Number: US-ACORDA-ACO_159252_2019

PATIENT
  Sex: Male
  Weight: 97.51 kg

DRUGS (2)
  1. INBRIJA [Suspect]
     Active Substance: LEVODOPA
     Indication: PARKINSON^S DISEASE
     Dosage: 84 MILLIGRAM, PRN
     Dates: start: 20190608
  2. INBRIJA [Suspect]
     Active Substance: LEVODOPA
     Indication: ON AND OFF PHENOMENON

REACTIONS (9)
  - Product residue present [Unknown]
  - Intentional product misuse [Unknown]
  - Ill-defined disorder [Unknown]
  - Wrong technique in device usage process [Unknown]
  - Cough [Recovering/Resolving]
  - Product packaging quantity issue [Unknown]
  - Choking [Recovering/Resolving]
  - Device issue [Unknown]
  - Device defective [Unknown]
